FAERS Safety Report 8852070 (Version 1)
Quarter: 2012Q4

REPORT INFORMATION
  Report Type: 
  Country: US (occurrence: US)
  Receive Date: 20121022
  Receipt Date: 20121022
  Transmission Date: 20130627
  Serious: Yes (Hospitalization)
  Sender: FDA-Public Use
  Company Number: US-BAYER-2012-107992

PATIENT
  Age: 30 Year
  Sex: Female

DRUGS (11)
  1. YASMIN [Suspect]
  2. YAZ [Suspect]
  3. OCELLA [Suspect]
  4. AZITHROMYCIN [Concomitant]
     Dosage: 250 mg, UNK
     Route: 048
  5. CYCLOBENZAPRINE HYDROCHLORIDE [Concomitant]
     Indication: MUSCLE SPASMS
     Dosage: 10 mg, 1 tablet
     Route: 048
  6. NORCO [Concomitant]
     Indication: PAIN
     Dosage: 7.5-325 mg 1 to 2 tablets every 6 hours
     Route: 048
  7. HYDROCODONE/ACETAMINOPHEN [Concomitant]
     Indication: PAIN
     Dosage: 7.5-325 mg 1 to 2 tablets every 6 hours
     Route: 048
  8. CEFPODOXIME [Concomitant]
  9. ADACEL [Concomitant]
     Dosage: UNK
     Dates: start: 20120604
  10. FLEXERIL [Concomitant]
  11. EPIPEN [Concomitant]

REACTIONS (2)
  - Pulmonary embolism [None]
  - Deep vein thrombosis [None]
